FAERS Safety Report 7238160-X (Version None)
Quarter: 2011Q1

REPORT INFORMATION
  Report Type: 
  Country: None (occurrence: None)
  Receive Date: 20110121
  Receipt Date: 20110113
  Transmission Date: 20110831
  Serious: Yes (Hospitalization)
  Sender: FDA-Public Use
  Company Number: US-SANOFI-AVENTIS-2011SA002954

PATIENT
  Age: 78 Year
  Sex: Male

DRUGS (3)
  1. ALL OTHER THERAPEUTIC PRODUCTS [Concomitant]
  2. MULTAQ [Suspect]
     Indication: ATRIAL FIBRILLATION
     Route: 048
     Dates: start: 20101125
  3. WARFARIN [Suspect]
     Route: 065

REACTIONS (5)
  - INTERNATIONAL NORMALISED RATIO INCREASED [None]
  - CHRONIC OBSTRUCTIVE PULMONARY DISEASE [None]
  - HAEMORRHAGE [None]
  - CONTUSION [None]
  - CONDITION AGGRAVATED [None]
